FAERS Safety Report 4593548-0 (Version None)
Quarter: 2005Q1

REPORT INFORMATION
  Report Type: 
  Country: None (occurrence: None)
  Receive Date: 20050224
  Receipt Date: 20040901
  Transmission Date: 20050727
  Serious: No
  Sender: FDA-Public Use
  Company Number: US-BRISTOL-MYERS SQUIBB COMPANY-12689956

PATIENT
  Age: 52 Year
  Sex: Female

DRUGS (4)
  1. EXCEDRIN (MIGRAINE) [Suspect]
     Indication: MIGRAINE
  2. ALEVE [Suspect]
     Indication: MIGRAINE
     Dosage: THERAPY DURATION WAS REPORTED AS ^{1 DAY^
     Route: 048
     Dates: start: 20040801, end: 20010801
  3. PAXIL [Concomitant]
  4. SYNTHROID [Concomitant]

REACTIONS (2)
  - DYSPEPSIA [None]
  - NAUSEA [None]
